FAERS Safety Report 12989661 (Version 1)
Quarter: 2016Q4

REPORT INFORMATION
  Report Type: Spontaneous
  Country: GB (occurrence: GB)
  Receive Date: 20161201
  Receipt Date: 20161201
  Transmission Date: 20170207
  Serious: Yes (Hospitalization)
  Sender: FDA-Public Use
  Company Number: GB-TEVA-715121ACC

PATIENT
  Age: 89 Year
  Sex: Female

DRUGS (14)
  1. ADCAL-D3 [Concomitant]
     Active Substance: CALCIUM CARBONATE\CHOLECALCIFEROL
     Dosage: 3000 MILLIGRAM DAILY;
  2. ALENDRONIC ACID [Concomitant]
     Active Substance: ALENDRONIC ACID
  3. CARBOCISTEINE [Concomitant]
     Active Substance: CARBOCYSTEINE
     Dosage: 2250 MILLIGRAM DAILY;
  4. FUROSEMIDE. [Concomitant]
     Active Substance: FUROSEMIDE
     Dosage: 20 MILLIGRAM DAILY;
  5. MOVELAT [Concomitant]
     Dosage: THREE TIMES DAILY.
  6. ENALAPRIL [Concomitant]
     Active Substance: ENALAPRIL
     Dosage: 2.5 MILLIGRAM DAILY;
  7. FELODIPINE. [Concomitant]
     Active Substance: FELODIPINE
     Dosage: 10 MILLIGRAM DAILY;
  8. OMEPRAZOLE. [Concomitant]
     Active Substance: OMEPRAZOLE
     Dosage: 20 MILLIGRAM DAILY;
  9. SYMBICORT [Concomitant]
     Active Substance: BUDESONIDE\FORMOTEROL FUMARATE DIHYDRATE
     Dosage: 4 DOSAGE FORMS DAILY; 200/6
  10. BISOPROLOL [Suspect]
     Active Substance: BISOPROLOL
     Dosage: 5 MILLIGRAM DAILY;
     Route: 048
     Dates: end: 20161104
  11. FYBOGEL [Concomitant]
     Active Substance: PLANTAGO OVATA SEED
     Dosage: 1 DOSAGE FORMS DAILY;
  12. TERBUTALINE [Concomitant]
     Active Substance: TERBUTALINE
  13. MIRABEGRON [Suspect]
     Active Substance: MIRABEGRON
     Dosage: 25 MILLIGRAM DAILY;
     Route: 048
     Dates: end: 20161104
  14. SPIRIVA [Concomitant]
     Active Substance: TIOTROPIUM BROMIDE MONOHYDRATE
     Dosage: 5 MICROGRAM DAILY;

REACTIONS (6)
  - Urinary tract infection [Recovering/Resolving]
  - Confusional state [Unknown]
  - Tremor [Unknown]
  - Balance disorder [Unknown]
  - Bradycardia [Recovering/Resolving]
  - Hypothermia [Unknown]
